FAERS Safety Report 20177158 (Version 6)
Quarter: 2022Q2

REPORT INFORMATION
  Report Type: Report from Study
  Country: US (occurrence: US)
  Receive Date: 20211213
  Receipt Date: 20220531
  Transmission Date: 20220721
  Serious: Yes (Hospitalization, Other)
  Sender: FDA-Public Use
  Company Number: US-BAYER-2021A265290

PATIENT
  Age: 35 Year
  Sex: Female
  Weight: 63.583 kg

DRUGS (10)
  1. ADEMPAS [Suspect]
     Active Substance: RIOCIGUAT
     Indication: Pulmonary arterial hypertension
     Dosage: 1 MG, TID
     Route: 048
     Dates: start: 20211207
  2. ADEMPAS [Suspect]
     Active Substance: RIOCIGUAT
     Indication: Pulmonary arterial hypertension
     Dosage: 1.5 MG, TID
     Route: 048
  3. ADEMPAS [Suspect]
     Active Substance: RIOCIGUAT
     Indication: Pulmonary arterial hypertension
     Dosage: 2.5 MG, TID
     Route: 048
  4. OXYGEN [Suspect]
     Active Substance: OXYGEN
     Dosage: UNK
  5. OXYGEN [Suspect]
     Active Substance: OXYGEN
     Dosage: 1-2 LPM, CONT
  6. OXYGEN [Suspect]
     Active Substance: OXYGEN
     Dosage: UNK, PRN
  7. REMODULIN [Suspect]
     Active Substance: TREPROSTINIL
     Dosage: UNK
  8. REMODULIN [Suspect]
     Active Substance: TREPROSTINIL
     Dosage: UNK
     Route: 058
  9. OPSUMIT [Concomitant]
     Active Substance: MACITENTAN
     Indication: Pulmonary hypertension
     Dosage: 10 MG, QD
     Route: 048
  10. ELIQUIS [Concomitant]
     Active Substance: APIXABAN
     Dosage: UNK

REACTIONS (11)
  - Pulmonary hypertension [None]
  - Thrombosis [Recovered/Resolved]
  - Epistaxis [Not Recovered/Not Resolved]
  - Nasal dryness [None]
  - Chest discomfort [None]
  - Sensation of foreign body [None]
  - Dyspnoea [None]
  - Dyspepsia [None]
  - Heart rate increased [None]
  - Regurgitation [None]
  - Diarrhoea [None]

NARRATIVE: CASE EVENT DATE: 20211109
